FAERS Safety Report 25340803 (Version 2)
Quarter: 2025Q3

REPORT INFORMATION
  Report Type: Spontaneous
  Country: GB (occurrence: GB)
  Receive Date: 20250521
  Receipt Date: 20250803
  Transmission Date: 20251021
  Serious: Yes (Other)
  Sender: ALEXION PHARMACEUTICALS
  Company Number: GB-MHRA-TPP42120440C3822341YC1747384264381

PATIENT
  Age: 47 Year
  Sex: Female
  Weight: 100 kg

DRUGS (5)
  1. DAPAGLIFLOZIN [Suspect]
     Active Substance: DAPAGLIFLOZIN
     Indication: Ill-defined disorder
     Dosage: 10 MILLIGRAM, QD
     Dates: start: 20250225, end: 20250516
  2. MOMETASONE [Concomitant]
     Active Substance: MOMETASONE
     Indication: Ill-defined disorder
     Dosage: 2 DOSAGE FORM, Q12H (EACH NOSTRIL)
     Dates: start: 20250327, end: 20250410
  3. PENICILLIN V [Concomitant]
     Active Substance: PENICILLIN V
     Indication: Ill-defined disorder
     Dosage: 2 DOSAGE FORM, Q6H (FOR 5 DAYS)
     Dates: start: 20250327, end: 20250401
  4. Easyhaler [Concomitant]
     Indication: Ill-defined disorder
     Dosage: 1 DOSAGE FORM, Q12H
     Dates: start: 20241202, end: 20250331
  5. METFORMIN [Concomitant]
     Active Substance: METFORMIN HYDROCHLORIDE
     Indication: Ill-defined disorder
     Dosage: 1 DOSAGE FORM, Q12H (WITH FOOD)
     Dates: start: 20241218

REACTIONS (2)
  - Myalgia [Recovered/Resolved]
  - Vulvovaginal candidiasis [Recovered/Resolved]

NARRATIVE: CASE EVENT DATE: 20250516
